FAERS Safety Report 4575734-9 (Version None)
Quarter: 2005Q1

REPORT INFORMATION
  Report Type: 
  Country: None (occurrence: None)
  Receive Date: 20050128
  Receipt Date: 20050128
  Transmission Date: 20050727
  Serious: No
  Sender: FDA-Public Use
  Company Number: None

PATIENT
  Age: 42 Year
  Sex: Female
  Weight: 97.5234 kg

DRUGS (2)
  1. ZOLOFT [Suspect]
     Indication: DEPRESSION
     Dosage: 50-100MG  DAILY  ORAL
     Route: 048
     Dates: start: 19960915, end: 20041201
  2. ZOLOFT [Suspect]
     Indication: POST-TRAUMATIC STRESS DISORDER
     Dosage: 50-100MG  DAILY  ORAL
     Route: 048
     Dates: start: 19960915, end: 20041201

REACTIONS (10)
  - AGITATION [None]
  - BACK PAIN [None]
  - DEPRESSION [None]
  - FEELING ABNORMAL [None]
  - HYSTERECTOMY [None]
  - INFLUENZA [None]
  - NAUSEA [None]
  - NUCHAL RIGIDITY [None]
  - TONGUE BITING [None]
  - TONGUE OEDEMA [None]
